FAERS Safety Report 22653998 (Version 1)
Quarter: 2023Q2

REPORT INFORMATION
  Report Type: Spontaneous
  Country: CN (occurrence: CN)
  Receive Date: 20230629
  Receipt Date: 20230629
  Transmission Date: 20230722
  Serious: Yes (Other)
  Sender: FDA-Public Use
  Company Number: CN-NOVAST LABORATORIES INC.-2023NOV000271

PATIENT
  Age: 47 Year
  Sex: Male

DRUGS (4)
  1. OXALIPLATIN [Suspect]
     Active Substance: OXALIPLATIN
     Indication: Rectal cancer stage IV
     Dosage: 716 MILLIGRAM/SQ. METER
     Route: 065
  2. CAPECITABINE [Concomitant]
     Active Substance: CAPECITABINE
     Indication: Rectal cancer stage IV
     Dosage: UNK
     Route: 065
  3. NIVOLUMAB [Concomitant]
     Active Substance: NIVOLUMAB
     Indication: Rectal cancer stage IV
     Dosage: 955 MILLIGRAM/SQ. METER
     Route: 065
  4. CETUXIMAB [Concomitant]
     Active Substance: CETUXIMAB
     Indication: Rectal cancer stage IV
     Dosage: UNK
     Route: 065

REACTIONS (1)
  - Haemolysis [Recovered/Resolved]
